FAERS Safety Report 8372623-9 (Version None)
Quarter: 2012Q2

REPORT INFORMATION
  Report Type: 
  Country: None (occurrence: None)
  Receive Date: 20120521
  Receipt Date: 20120515
  Transmission Date: 20120825
  Serious: Yes (Hospitalization)
  Sender: FDA-Public Use
  Company Number: PHHY2010BR01013

PATIENT
  Sex: Male

DRUGS (4)
  1. NEXIUM [Concomitant]
  2. MOTILIUM [Concomitant]
  3. ZELMAC [Suspect]
     Indication: ABDOMINAL DISCOMFORT
     Dosage: 30 MINUTES AFTER MEALS
     Route: 048
  4. PENTASA [Concomitant]

REACTIONS (4)
  - CONDITION AGGRAVATED [None]
  - CONSTIPATION [None]
  - MALAISE [None]
  - INAPPROPRIATE SCHEDULE OF DRUG ADMINISTRATION [None]
